FAERS Safety Report 10677000 (Version 2)
Quarter: 2014Q4

REPORT INFORMATION
  Report Type: Spontaneous
  Country: US (occurrence: US)
  Receive Date: 20141226
  Receipt Date: 20141226
  Transmission Date: 20150529
  Serious: Yes (Life-Threatening, Hospitalization)
  Sender: FDA-Public Use
  Company Number: CHPA2012US009003

PATIENT
  Age: 51 Year
  Sex: Female

DRUGS (4)
  1. TRIAMINIC NIGHT TIME COLD + COUGH [Suspect]
     Active Substance: DIPHENHYDRAMINE\PHENYLEPHRINE
     Indication: CHRONIC OBSTRUCTIVE PULMONARY DISEASE
     Dosage: 2 TSP, 4 TO 5 TIMES A DAY
     Route: 065
     Dates: start: 20141222
  2. TRIAMINIC NIGHT TIME COLD + COUGH [Suspect]
     Active Substance: DIPHENHYDRAMINE\PHENYLEPHRINE
     Indication: COUGH
     Dosage: 3 TSP, UNK
     Route: 048
     Dates: start: 2009, end: 20141221
  3. TRIAMINIC NIGHT TIME COLD + COUGH [Suspect]
     Active Substance: DIPHENHYDRAMINE\PHENYLEPHRINE
     Dosage: UNK UNK, QD
     Route: 065
  4. TRIAMINIC NIGHT TIME COLD + COUGH [Suspect]
     Active Substance: DIPHENHYDRAMINE\PHENYLEPHRINE
     Dosage: 3 TSP, Q4H
     Route: 048
     Dates: start: 2009

REACTIONS (14)
  - Oropharyngeal pain [Unknown]
  - Overdose [Unknown]
  - Rhinorrhoea [Unknown]
  - Therapeutic response unexpected [Unknown]
  - Incorrect drug administration duration [Unknown]
  - Expired product administered [Unknown]
  - Choking [Unknown]
  - Cough [Unknown]
  - Feeling abnormal [Unknown]
  - Gastroenteritis viral [Recovered/Resolved]
  - Oxygen saturation decreased [Recovered/Resolved]
  - Vomiting [Unknown]
  - Malaise [Unknown]
  - Product use issue [Unknown]

NARRATIVE: CASE EVENT DATE: 2009
